FAERS Safety Report 7608580-X (Version None)
Quarter: 2011Q3

REPORT INFORMATION
  Report Type: 
  Country: None (occurrence: None)
  Receive Date: 20110713
  Receipt Date: 20110713
  Transmission Date: 20111222
  Serious: Yes (Hospitalization)
  Sender: FDA-Public Use
  Company Number: None

PATIENT
  Sex: Female
  Weight: 98.3 kg

DRUGS (2)
  1. PEMETREXED [Suspect]
     Dosage: 1000 MG
  2. CISPLATIN [Suspect]
     Dosage: 100 MG

REACTIONS (11)
  - ANAEMIA [None]
  - ADENOCARCINOMA OF THE CERVIX [None]
  - NEOPLASM RECURRENCE [None]
  - PYREXIA [None]
  - ENTEROCOCCUS TEST POSITIVE [None]
  - URETERIC OBSTRUCTION [None]
  - PSEUDOMONAS TEST POSITIVE [None]
  - PLATELET COUNT DECREASED [None]
  - BLOOD ALBUMIN DECREASED [None]
  - RENAL FAILURE ACUTE [None]
  - FLANK PAIN [None]
